FAERS Safety Report 4577532-9 (Version None)
Quarter: 2005Q1

REPORT INFORMATION
  Report Type: 
  Country: None (occurrence: None)
  Receive Date: 20050208
  Receipt Date: 20050126
  Transmission Date: 20050727
  Serious: No
  Sender: FDA-Public Use
  Company Number: 2005AP00593

PATIENT
  Age: 53 Year
  Sex: Female

DRUGS (2)
  1. ARIMIDEX [Suspect]
     Indication: BREAST CANCER
     Dates: end: 20041218
  2. ARIMIDEX [Suspect]
     Indication: PROPHYLAXIS
     Dates: end: 20041218

REACTIONS (2)
  - PSORIASIS [None]
  - RASH [None]
